FAERS Safety Report 9705058 (Version 4)
Quarter: 2014Q3

REPORT INFORMATION
  Report Type: Spontaneous
  Country: US (occurrence: US)
  Receive Date: 20131122
  Receipt Date: 20140822
  Transmission Date: 20150326
  Serious: Yes (Life-Threatening, Hospitalization)
  Sender: FDA-Public Use
  Company Number: US-BAYER-2013-139495

PATIENT
  Age: 28 Year
  Sex: Female
  Weight: 51 kg

DRUGS (3)
  1. MIRENA [Suspect]
     Active Substance: LEVONORGESTREL
     Indication: CONTRACEPTION
     Dosage: 20 MCG/24HR, CONT
     Route: 015
     Dates: start: 200803, end: 20130103
  2. TINDAMAX [Concomitant]
     Active Substance: TINIDAZOLE
     Dosage: 500 MG, UNK
  3. MIRENA [Suspect]
     Active Substance: LEVONORGESTREL
     Indication: CONTRACEPTION
     Dosage: UNK

REACTIONS (11)
  - General physical health deterioration [None]
  - Injury [None]
  - Depression [None]
  - Pregnancy with contraceptive device [Recovered/Resolved]
  - Anxiety [None]
  - Anhedonia [None]
  - Abortion spontaneous [None]
  - Device defective [None]
  - Drug ineffective [None]
  - Emotional distress [None]
  - Abdominal pain lower [None]

NARRATIVE: CASE EVENT DATE: 2013
